FAERS Safety Report 6159425-9 (Version None)
Quarter: 2009Q2

REPORT INFORMATION
  Report Type: 
  Country: None (occurrence: None)
  Receive Date: 20090417
  Receipt Date: 20090415
  Transmission Date: 20091009
  Serious: Yes (Life-Threatening, Hospitalization, Other)
  Sender: FDA-Public Use
  Company Number: PHHY2009FR02207

PATIENT
  Sex: Female

DRUGS (6)
  1. EXFORGE [Suspect]
     Indication: HYPERTENSION
     Dosage: 1 ORAL TABLET PER DAY
     Route: 048
     Dates: start: 20081208, end: 20090117
  2. EXFORGE [Suspect]
     Dosage: 5/80, 1 TABLET PER DAY
     Route: 048
  3. IXPRIM [Suspect]
  4. LAMALINE [Suspect]
     Dosage: UNK
     Dates: start: 20081201
  5. COLCHIMAX [Concomitant]
     Indication: CHONDROCALCINOSIS
     Dosage: UNK
     Dates: start: 20040101
  6. PLAVIX [Concomitant]
     Dosage: 1 PER DAY
     Dates: start: 20050101

REACTIONS (12)
  - ANOREXIA [None]
  - BLOOD CREATININE INCREASED [None]
  - COMA [None]
  - DEHYDRATION [None]
  - FALL [None]
  - HYPERCALCAEMIA [None]
  - HYPERTENSION [None]
  - MULTIPLE MYELOMA [None]
  - RENAL FAILURE ACUTE [None]
  - RIB FRACTURE [None]
  - SOMNOLENCE [None]
  - URINE OUTPUT DECREASED [None]
